FAERS Safety Report 9122917 (Version 1)
Quarter: 2013Q1

REPORT INFORMATION
  Report Type: Spontaneous
  Country: US (occurrence: US)
  Receive Date: 20130227
  Receipt Date: 20130227
  Transmission Date: 20140127
  Serious: No
  Sender: FDA-Public Use
  Company Number: US-GLAXOSMITHKLINE-A0984930A

PATIENT
  Age: 43 Year
  Sex: Female

DRUGS (2)
  1. VALACYCLOVIR [Suspect]
     Indication: GENITAL HERPES
     Route: 048
     Dates: start: 201207
  2. MULTIVITAMIN [Concomitant]

REACTIONS (2)
  - Alopecia [Not Recovered/Not Resolved]
  - Alopecia [Not Recovered/Not Resolved]
